FAERS Safety Report 14946111 (Version 1)
Quarter: 2018Q2

REPORT INFORMATION
  Report Type: Spontaneous
  Country: RU (occurrence: RU)
  Receive Date: 20180529
  Receipt Date: 20180529
  Transmission Date: 20180711
  Serious: Yes (Hospitalization, Other)
  Sender: FDA-Public Use
  Company Number: RU-ASTRAZENECA-2017SF12382

PATIENT
  Age: 77 Year
  Sex: Male
  Weight: 29.5 kg

DRUGS (7)
  1. ATORVASTATIN [Concomitant]
     Active Substance: ATORVASTATIN
  2. BRILINTA [Suspect]
     Active Substance: TICAGRELOR
     Indication: MYOCARDIAL INFARCTION
     Route: 048
     Dates: start: 201502
  3. CARDIOMAGNYL [Concomitant]
     Active Substance: ASPIRIN\MAGNESIUM HYDROXIDE
  4. AMLODIPINE [Concomitant]
     Active Substance: AMLODIPINE BESYLATE
  5. BETALOC [Concomitant]
     Active Substance: METOPROLOL TARTRATE
  6. BERLIPRIL [Concomitant]
     Active Substance: ENALAPRIL MALEATE
  7. INDAPAMIDE. [Concomitant]
     Active Substance: INDAPAMIDE

REACTIONS (5)
  - Vascular stent occlusion [Recovered/Resolved]
  - Angina pectoris [Not Recovered/Not Resolved]
  - Off label use [Unknown]
  - Intentional product use issue [Unknown]
  - Myocardial infarction [Unknown]

NARRATIVE: CASE EVENT DATE: 20171029
